FAERS Safety Report 4870294-7 (Version None)
Quarter: 2005Q4

REPORT INFORMATION
  Report Type: 
  Country: None (occurrence: None)
  Receive Date: 20051223
  Receipt Date: 20051208
  Transmission Date: 20060501
  Serious: Yes (Hospitalization)
  Sender: FDA-Public Use
  Company Number: 6019098

PATIENT
  Age: 66 Year
  Sex: Female

DRUGS (5)
  1. LEVOTHYROX 50 (TABLET) (LEVOTHYROXINE SODIUM) [Suspect]
     Dosage: 1 DOSAGE FORMS (1 DOSAGE FORMS, 1D) ORAL
     Route: 048
     Dates: start: 20031201
  2. SPAGULAX (PLANTAGO OVATA) [Suspect]
     Dosage: ORAL
     Route: 048
  3. ARIMIDEX [Suspect]
     Dosage: 1 DOSAGE FORMS (1 DOSAGE FORMS, 1 D) ORAL
     Route: 048
     Dates: start: 20050501
  4. DI-ANTALVIC (CAPSULE) (PARACETAMOL) [Suspect]
     Dosage: 2 DOSAGE FORMS (2 DOSAGE FORMS, 1 D) ORAL
     Route: 048
  5. LEXOMIL (12 MG, TABLET) (BROMAZEPAM) [Suspect]
     Dosage: 0,75 DOSAGE FORMS (0,75 DOSAGE FORMS, 1 D) ORAL
     Route: 048

REACTIONS (3)
  - BREAST CANCER [None]
  - DERMATITIS BULLOUS [None]
  - PORPHYRIA NON-ACUTE [None]
